FAERS Safety Report 5101277-X (Version None)
Quarter: 2006Q3

REPORT INFORMATION
  Report Type: 
  Country: None (occurrence: None)
  Receive Date: 20060906
  Receipt Date: 20060822
  Transmission Date: 20061208
  Serious: Yes (Life-Threatening, Hospitalization)
  Sender: FDA-Public Use
  Company Number: 2006EU002374

PATIENT
  Age: 74 Year
  Sex: Female

DRUGS (12)
  1. VESICARE [Suspect]
     Indication: INCONTINENCE
     Dosage: 5 MG, UID/QD, ORAL
     Route: 048
     Dates: start: 20060620, end: 20060704
  2. QUININE SULFATE [Suspect]
     Dosage: 300 MG, UNKNOWN D
     Dates: start: 20060613
  3. ADCAL (CARBAZOCHROME) [Concomitant]
  4. ALENDRONIC ACID (ALENDRONIC ACID) [Concomitant]
  5. BONJELA (ETHANOL, GLYCEROL, CETALKONIUM CHLORIDE, CHOLINE SALICYLATE) [Concomitant]
  6. ACETAMINOPHEN W/ CODEINE [Concomitant]
  7. CYCLIZINE (CYCLIZINE) [Concomitant]
  8. MOVICOL (MARCROGOL, POTASSIUM CHLORIDE, SODIUM BICARBONATE) [Concomitant]
  9. NYSTATIN [Concomitant]
  10. OMEPRAZOLE [Concomitant]
  11. PROPIVERINE (PROPIVERINE) [Concomitant]
  12. DOCUSATE SODIUM (DOCUSATE SODIUM) [Concomitant]

REACTIONS (2)
  - INCONTINENCE [None]
  - THROMBOCYTOPENIA [None]
